FAERS Safety Report 18665118 (Version 1)
Quarter: 2020Q4

REPORT INFORMATION
  Report Type: Spontaneous
  Country: CN (occurrence: CN)
  Receive Date: 20201225
  Receipt Date: 20201225
  Transmission Date: 20210114
  Serious: Yes (Disabling, Other)
  Sender: FDA-Public Use
  Company Number: CN-BAXTER-2020BAX026112

PATIENT
  Age: 2 Year
  Sex: Female

DRUGS (8)
  1. 0.9% SODIUM CHLORIDE INJECTION [Suspect]
     Active Substance: SODIUM CHLORIDE
     Indication: MEDICATION DILUTION
     Dosage: ENDOXAN + NS 30 ML
     Route: 041
     Dates: start: 20201209, end: 20201213
  2. 0.9% SODIUM CHLORIDE INJECTION [Suspect]
     Active Substance: SODIUM CHLORIDE
     Dosage: AOLUONA + NS, DOSE REINTRODUCED
     Route: 041
     Dates: start: 202012
  3. AOLUONA (TOPOTECAN HYDROCHLORIDE) [Suspect]
     Active Substance: TOPOTECAN HYDROCHLORIDE
     Dosage: AOLUONA + NS, DOSE REINTRODUCED
     Route: 041
     Dates: start: 202012
  4. 0.9% SODIUM CHLORIDE INJECTION [Suspect]
     Active Substance: SODIUM CHLORIDE
     Dosage: ENDOXAN + NS, DOSE REINTRODUCED
     Route: 041
     Dates: start: 202012
  5. AOLUONA (TOPOTECAN HYDROCHLORIDE) [Suspect]
     Active Substance: TOPOTECAN HYDROCHLORIDE
     Indication: NEUROBLASTOMA
     Dosage: AOLUONA + NS 100ML
     Route: 041
     Dates: start: 20201209, end: 20201213
  6. ENDOXAN [Suspect]
     Active Substance: CYCLOPHOSPHAMIDE
     Indication: NEUROBLASTOMA
     Dosage: ENDOXAN + NS 30 ML
     Route: 041
     Dates: start: 20201209, end: 20201213
  7. ENDOXAN [Suspect]
     Active Substance: CYCLOPHOSPHAMIDE
     Dosage: ENDOXAN + NS, DOSE REINTRODUCED
     Route: 041
     Dates: start: 202012
  8. 0.9% SODIUM CHLORIDE INJECTION [Suspect]
     Active Substance: SODIUM CHLORIDE
     Dosage: AOLUONA + NS 100 ML
     Route: 041
     Dates: start: 20201209, end: 20201213

REACTIONS (1)
  - Myelosuppression [Unknown]

NARRATIVE: CASE EVENT DATE: 20201212
